FAERS Safety Report 21581794 (Version 2)
Quarter: 2023Q1

REPORT INFORMATION
  Report Type: Report from Study
  Country: US (occurrence: US)
  Receive Date: 20221111
  Receipt Date: 20230108
  Transmission Date: 20230418
  Serious: No
  Sender: FDA-Public Use
  Company Number: US-ABBVIE-4193288

PATIENT
  Age: 56 Year
  Sex: Female

DRUGS (2)
  1. HUMIRA [Suspect]
     Active Substance: ADALIMUMAB
     Indication: Psoriasis
     Dosage: FORM STRENGTH 40 MG ,CITRATE FREE
     Route: 058
  2. HUMIRA [Suspect]
     Active Substance: ADALIMUMAB
     Dosage: FORM STRENGTH 40 MG ,CITRATE FREE
     Route: 058

REACTIONS (3)
  - COVID-19 [Recovering/Resolving]
  - Psoriasis [Recovered/Resolved]
  - Throat irritation [Recovering/Resolving]

NARRATIVE: CASE EVENT DATE: 20221001
